FAERS Safety Report 7477902-5 (Version None)
Quarter: 2011Q2

REPORT INFORMATION
  Report Type: 
  Country: None (occurrence: None)
  Receive Date: 20110513
  Receipt Date: 20090627
  Transmission Date: 20111010
  Serious: Yes (Other)
  Sender: FDA-Public Use
  Company Number: US-BAYER-200924400NA

PATIENT
  Age: 56 Year
  Sex: Male
  Weight: 108.39 kg

DRUGS (11)
  1. CLONIDINE [Concomitant]
     Dosage: .1 MG, BID
     Route: 048
     Dates: start: 20040927, end: 20041019
  2. TRASYLOL [Suspect]
     Indication: CORONARY ENDARTERECTOMY
  3. LASIX [Concomitant]
     Dosage: 40 MG
     Route: 048
     Dates: start: 20011231
  4. AMIODARONE HCL [Concomitant]
     Dosage: 800 MG, BID
     Route: 048
     Dates: start: 20040927, end: 20041118
  5. COZAAR [Concomitant]
     Dosage: 100 MG, UNK
     Route: 048
     Dates: start: 20040714, end: 20040929
  6. CARDIZEM [Concomitant]
     Dosage: 240 MG, QD
     Route: 048
     Dates: start: 20040915, end: 20040927
  7. TRASYLOL [Suspect]
     Indication: MITRAL VALVE REPAIR
  8. TOPROL-XL [Concomitant]
     Dosage: 50 MG, QD
     Route: 048
     Dates: start: 20020321, end: 20040927
  9. TRASYLOL [Suspect]
     Indication: CORONARY ARTERY BYPASS
     Dosage: 200 ML, LOADING DOSE
     Route: 042
     Dates: start: 20040929, end: 20040929
  10. VIOXX [Concomitant]
     Dosage: 12.5
     Route: 048
     Dates: start: 20020201, end: 20040801
  11. HEPARIN [Concomitant]
     Indication: ANTICOAGULANT THERAPY
     Dosage: 46,000U
     Route: 042
     Dates: start: 20040929, end: 20040929

REACTIONS (9)
  - DEPRESSION [None]
  - RENAL FAILURE [None]
  - UNEVALUABLE EVENT [None]
  - RENAL FAILURE CHRONIC [None]
  - INJURY [None]
  - FEAR [None]
  - ANHEDONIA [None]
  - ANXIETY [None]
  - PAIN [None]
